FAERS Safety Report 23851372 (Version 2)
Quarter: 2024Q3

REPORT INFORMATION
  Report Type: Spontaneous
  Country: JP (occurrence: JP)
  Receive Date: 20240514
  Receipt Date: 20240723
  Transmission Date: 20241016
  Serious: Yes (Hospitalization)
  Sender: JOHNSON AND JOHNSON
  Company Number: JP-JNJFOC-20240537889

PATIENT
  Age: 64 Year
  Sex: Female

DRUGS (3)
  1. INVEGA [Suspect]
     Active Substance: PALIPERIDONE
     Indication: Product used for unknown indication
     Route: 048
  2. PALIPERIDONE PALMITATE [Concomitant]
     Active Substance: PALIPERIDONE PALMITATE
     Route: 030
  3. PALIPERIDONE PALMITATE [Concomitant]
     Active Substance: PALIPERIDONE PALMITATE
     Route: 030

REACTIONS (2)
  - Hospitalisation [Unknown]
  - Treatment noncompliance [Unknown]
